FAERS Safety Report 10028902 (Version 2)
Quarter: 2014Q2

REPORT INFORMATION
  Report Type: Report from Study
  Country: CA (occurrence: CA)
  Receive Date: 20140321
  Receipt Date: 20140428
  Transmission Date: 20141212
  Serious: Yes (Other)
  Sender: FDA-Public Use
  Company Number: CA-ABBVIE-14P-028-1213191-00

PATIENT
  Sex: Female

DRUGS (2)
  1. HUMIRA [Suspect]
     Indication: CROHN^S DISEASE
     Route: 058
     Dates: start: 20110204, end: 201310
  2. HUMIRA [Suspect]
     Route: 058

REACTIONS (4)
  - Intestinal obstruction [Recovered/Resolved]
  - Intestinal perforation [Recovered/Resolved]
  - Scar [Unknown]
  - Crohn^s disease [Not Recovered/Not Resolved]
